FAERS Safety Report 5744538-3 (Version None)
Quarter: 2008Q2

REPORT INFORMATION
  Report Type: 
  Country: None (occurrence: None)
  Receive Date: 20080520
  Receipt Date: 20080425
  Transmission Date: 20081010
  Serious: No
  Sender: FDA-Public Use
  Company Number: US-BOEHRINGER INGELHEIM GMBH, GERMANY-2008-BP-04505BP

PATIENT
  Sex: Male
  Weight: 95 kg

DRUGS (6)
  1. SPIRIVA [Suspect]
     Indication: CHRONIC OBSTRUCTIVE PULMONARY DISEASE
     Dates: start: 20070701, end: 20070905
  2. TRICOR [Concomitant]
  3. HYDROCHLORIZIDE [Concomitant]
  4. ASPIRIN [Concomitant]
  5. ZETIA [Concomitant]
  6. QVAR 40 [Concomitant]
     Dates: start: 20070713, end: 20070901

REACTIONS (7)
  - DRUG HYPERSENSITIVITY [None]
  - DYSURIA [None]
  - EYE IRRITATION [None]
  - GLOSSODYNIA [None]
  - ORAL PAIN [None]
  - SWOLLEN TONGUE [None]
  - TONGUE DISORDER [None]
